FAERS Safety Report 4689542-1 (Version None)
Quarter: 2005Q2

REPORT INFORMATION
  Report Type: 
  Country: None (occurrence: None)
  Receive Date: 20050613
  Receipt Date: 20050613
  Transmission Date: 20051028
  Serious: Yes (Hospitalization)
  Sender: FDA-Public Use
  Company Number: None

PATIENT
  Age: 24 Year
  Sex: Male
  Weight: 93 kg

DRUGS (1)
  1. HYDROCODONE BITARTRATE [Suspect]
     Indication: PAIN MANAGEMENT
     Dosage: 5-20 ML Q 4 H PO PRN
     Route: 048
     Dates: start: 20050201

REACTIONS (1)
  - INADEQUATE ANALGESIA [None]
